FAERS Safety Report 8539817-0 (Version None)
Quarter: 2012Q3

REPORT INFORMATION
  Report Type: 
  Country: None (occurrence: None)
  Receive Date: 20120726
  Receipt Date: 20120409
  Transmission Date: 20120928
  Serious: No
  Sender: FDA-Public Use
  Company Number: US-MYLANLABS-2012S1007751

PATIENT
  Age: 83 Year
  Sex: Male
  Weight: 78.02 kg

DRUGS (3)
  1. SIMVASTATIN [Concomitant]
     Indication: BLOOD CHOLESTEROL INCREASED
  2. ACEBUTOLOL HYDROCHLORIDE [Concomitant]
     Indication: BLOOD PRESSURE INCREASED
  3. TAMSULOSIN HCL [Suspect]
     Indication: BENIGN PROSTATIC HYPERPLASIA
     Route: 048
     Dates: start: 20120101

REACTIONS (2)
  - URINE FLOW DECREASED [None]
  - DRUG INEFFECTIVE [None]
